FAERS Safety Report 4292289-7 (Version None)
Quarter: 2004Q1

REPORT INFORMATION
  Report Type: 
  Country: None (occurrence: None)
  Receive Date: 20040126
  Receipt Date: 20030820
  Transmission Date: 20041129
  Serious: No
  Sender: FDA-Public Use
  Company Number: USA030843751

PATIENT
  Age: 68 Year
  Sex: Female
  Weight: 66 kg

DRUGS (5)
  1. FORTEO [Suspect]
     Indication: OSTEOPOROSIS
     Dates: start: 20030701
  2. BEXTRA [Concomitant]
  3. FLEXERIL [Concomitant]
  4. HYDROCODONE [Concomitant]
  5. PREMARIN [Concomitant]

REACTIONS (6)
  - CONTUSION [None]
  - INJECTION SITE BURNING [None]
  - INJECTION SITE ERYTHEMA [None]
  - INJECTION SITE PAIN [None]
  - MOVEMENT DISORDER [None]
  - PAIN [None]
